FAERS Safety Report 9258704 (Version 1)
Quarter: 2013Q1

REPORT INFORMATION
  Report Type: Spontaneous
  Country: US (occurrence: None)
  Receive Date: 20121212
  Receipt Date: 20121212
  Transmission Date: 20140127
  Serious: No
  Sender: FDA-Public Use
  Company Number: 1209USA011272

PATIENT
  Age: 56 Year
  Sex: Female

DRUGS (2)
  1. PEG-INTRON [Suspect]
     Indication: HEPATITIS
     Dosage: POWDER FOR INJECTION
     Dates: start: 20120727, end: 20120905
  2. REBETOL [Suspect]
     Indication: HEPATITIS
     Dosage: UNK
     Dates: start: 20120727, end: 20120905

REACTIONS (1)
  - Drug ineffective [None]
